FAERS Safety Report 17681948 (Version 2)
Quarter: 2021Q1

REPORT INFORMATION
  Report Type: Report from Study
  Country: None (occurrence: CA)
  Receive Date: 20200418
  Receipt Date: 20210326
  Transmission Date: 20210419
  Serious: Yes (Other)
  Sender: FDA-Public Use
  Company Number: CA-ABBVIE-20K-028-3369018-00

PATIENT
  Age: 43 Year
  Sex: Female

DRUGS (2)
  1. HUMIRA [Suspect]
     Active Substance: ADALIMUMAB
     Route: 058
  2. HUMIRA [Suspect]
     Active Substance: ADALIMUMAB
     Indication: CROHN^S DISEASE
     Route: 058
     Dates: start: 20160205

REACTIONS (9)
  - Temperature intolerance [Unknown]
  - Systemic lupus erythematosus [Unknown]
  - Arthralgia [Recovering/Resolving]
  - Asthenia [Unknown]
  - Stress [Recovering/Resolving]
  - Photosensitivity reaction [Unknown]
  - Urticaria [Not Recovered/Not Resolved]
  - Injection site pain [Unknown]
  - Malaise [Unknown]

NARRATIVE: CASE EVENT DATE: 20200414
